FAERS Safety Report 12981577 (Version 1)
Quarter: 2016Q4

REPORT INFORMATION
  Report Type: Spontaneous
  Country: US (occurrence: US)
  Receive Date: 20161129
  Receipt Date: 20161129
  Transmission Date: 20170207
  Serious: Yes (Other)
  Sender: FDA-Public Use
  Company Number: US-ACCORD-045479

PATIENT
  Age: 66 Year
  Sex: Female

DRUGS (10)
  1. AMLODIPINE [Concomitant]
     Active Substance: AMLODIPINE BESYLATE
     Indication: HYPERTENSION
     Route: 048
  2. GEMFIBROZIL. [Concomitant]
     Active Substance: GEMFIBROZIL
  3. TRAMADOL. [Concomitant]
     Active Substance: TRAMADOL
     Indication: PAIN
     Route: 048
  4. CAPECITABINE. [Suspect]
     Active Substance: CAPECITABINE
     Indication: COLON CANCER
     Dosage: STRENGTH: 2000 MG (4 TABLETS), 14 DAYS THERAPY THEN OFF 1 WEEK
     Route: 048
     Dates: start: 20161025
  5. ACETYLSALICYLIC ACID [Concomitant]
     Active Substance: ASPIRIN
     Route: 048
  6. FUROSEMIDE. [Concomitant]
     Active Substance: FUROSEMIDE
  7. IRON [Concomitant]
     Active Substance: IRON
     Indication: ANAEMIA
     Route: 048
  8. FLUOROURACIL. [Concomitant]
     Active Substance: FLUOROURACIL
  9. POTASSIUM [Concomitant]
     Active Substance: POTASSIUM
  10. LEVOTHYROXINE. [Concomitant]
     Active Substance: LEVOTHYROXINE

REACTIONS (1)
  - Gingival bleeding [Recovered/Resolved]

NARRATIVE: CASE EVENT DATE: 20161025
